FAERS Safety Report 8605691-7 (Version None)
Quarter: 2012Q3

REPORT INFORMATION
  Report Type: 
  Country: None (occurrence: None)
  Receive Date: 20120820
  Receipt Date: 20120807
  Transmission Date: 20120928
  Serious: Yes (Other)
  Sender: FDA-Public Use
  Company Number: BE-JNJFOC-20120809228

PATIENT
  Sex: Female

DRUGS (1)
  1. XARELTO [Suspect]
     Indication: DEEP VEIN THROMBOSIS
     Route: 048
     Dates: start: 20120720, end: 20120809

REACTIONS (6)
  - CHILLS [None]
  - TACHYCARDIA [None]
  - PYREXIA [None]
  - TREMOR [None]
  - VERTIGO [None]
  - ALOPECIA [None]
